FAERS Safety Report 18451549 (Version 7)
Quarter: 2021Q2

REPORT INFORMATION
  Report Type: Report from Study
  Country: IL (occurrence: IL)
  Receive Date: 20201102
  Receipt Date: 20210524
  Transmission Date: 20210717
  Serious: Yes (Death, Hospitalization, Other)
  Sender: FDA-Public Use
  Company Number: NVSC2020IL285885

PATIENT
  Age: 77 Year
  Sex: Male

DRUGS (3)
  1. SANDOSTATIN LAR DEPOT [Suspect]
     Active Substance: OCTREOTIDE ACETATE
     Indication: NEUROENDOCRINE TUMOUR
     Dosage: 60 MG, Q4W
     Route: 030
     Dates: start: 20110627
  2. SANDOSTATIN LAR DEPOT [Suspect]
     Active Substance: OCTREOTIDE ACETATE
  3. SANDOSTATIN LAR DEPOT [Suspect]
     Active Substance: OCTREOTIDE ACETATE

REACTIONS (17)
  - Metastases to lung [Unknown]
  - Incorrect dose administered [Unknown]
  - Hepatitis [Not Recovered/Not Resolved]
  - Pyrexia [Not Recovered/Not Resolved]
  - Inflammation [Unknown]
  - Malignant neoplasm progression [Unknown]
  - Metastases to liver [Unknown]
  - Chills [Recovered/Resolved]
  - General physical health deterioration [Not Recovered/Not Resolved]
  - Intestinal obstruction [Unknown]
  - Urinary retention [Not Recovered/Not Resolved]
  - Death [Fatal]
  - Metastases to abdominal wall [Unknown]
  - Neuroendocrine tumour [Unknown]
  - Multiple organ dysfunction syndrome [Not Recovered/Not Resolved]
  - Jaundice [Recovered/Resolved]
  - Portal vein thrombosis [Unknown]

NARRATIVE: CASE EVENT DATE: 20201020
